FAERS Safety Report 14416090 (Version 42)
Quarter: 2021Q3

REPORT INFORMATION
  Report Type: Other
  Country: CA (occurrence: CA)
  Receive Date: 20180122
  Receipt Date: 20210915
  Transmission Date: 20211014
  Serious: Yes (Hospitalization, Other)
  Sender: FDA-Public Use
  Company Number: CA-ROCHE-2058210

PATIENT
  Age: 68 Year
  Sex: Female

DRUGS (50)
  1. XOLAIR [Suspect]
     Active Substance: OMALIZUMAB
     Route: 058
     Dates: start: 20180419
  2. XOLAIR [Suspect]
     Active Substance: OMALIZUMAB
     Route: 058
     Dates: start: 20180601
  3. XOLAIR [Suspect]
     Active Substance: OMALIZUMAB
     Route: 058
  4. PREDNISONE. [Suspect]
     Active Substance: PREDNISONE
     Indication: ASTHMA
     Route: 048
     Dates: start: 2013
  5. DILTIAZEM. [Concomitant]
     Active Substance: DILTIAZEM
     Indication: PRODUCT USED FOR UNKNOWN INDICATION
     Route: 048
  6. LASIX [Concomitant]
     Active Substance: FUROSEMIDE
  7. XOLAIR [Suspect]
     Active Substance: OMALIZUMAB
     Route: 058
     Dates: start: 20181228
  8. XOLAIR [Suspect]
     Active Substance: OMALIZUMAB
     Route: 058
     Dates: start: 20191015
  9. VENTOLIN [Concomitant]
     Active Substance: ALBUTEROL SULFATE
     Indication: ASTHMA
     Dosage: 4 DF, UNK
     Route: 055
     Dates: start: 2010
  10. NPH [ISOPHANE INSULIN] [Concomitant]
     Active Substance: INSULIN NOS
     Indication: PRODUCT USED FOR UNKNOWN INDICATION
     Dosage: UNK (UP FROM 14 TO 24UNITS DAILY)
     Route: 065
  11. XOLAIR [Suspect]
     Active Substance: OMALIZUMAB
     Route: 058
     Dates: start: 20180517
  12. XOLAIR [Suspect]
     Active Substance: OMALIZUMAB
     Route: 058
     Dates: start: 20180629
  13. XOLAIR [Suspect]
     Active Substance: OMALIZUMAB
     Route: 058
     Dates: start: 20200512
  14. XOLAIR [Suspect]
     Active Substance: OMALIZUMAB
     Route: 058
  15. MEPERIDINE HYDROCHLORIDE. [Suspect]
     Active Substance: MEPERIDINE HYDROCHLORIDE
     Indication: PRODUCT USED FOR UNKNOWN INDICATION
     Route: 065
  16. PREDNISONE. [Suspect]
     Active Substance: PREDNISONE
     Route: 048
     Dates: start: 20200623
  17. ATORVASTATIN [Concomitant]
     Active Substance: ATORVASTATIN
     Route: 065
  18. XOLAIR [Suspect]
     Active Substance: OMALIZUMAB
     Route: 058
     Dates: start: 20180712
  19. XOLAIR [Suspect]
     Active Substance: OMALIZUMAB
     Route: 058
     Dates: start: 20181129
  20. XOLAIR [Suspect]
     Active Substance: OMALIZUMAB
     Route: 058
     Dates: start: 20190514
  21. XOLAIR [Suspect]
     Active Substance: OMALIZUMAB
     Route: 058
     Dates: start: 20210122
  22. XOLAIR [Suspect]
     Active Substance: OMALIZUMAB
     Route: 058
  23. XOLAIR [Suspect]
     Active Substance: OMALIZUMAB
     Route: 058
     Dates: start: 20180125
  24. XOLAIR [Suspect]
     Active Substance: OMALIZUMAB
     Route: 058
     Dates: start: 20190430
  25. XOLAIR [Suspect]
     Active Substance: OMALIZUMAB
     Route: 058
  26. XOLAIR [Suspect]
     Active Substance: OMALIZUMAB
     Route: 058
     Dates: start: 20171101
  27. XOLAIR [Suspect]
     Active Substance: OMALIZUMAB
     Route: 058
     Dates: start: 201801
  28. XOLAIR [Suspect]
     Active Substance: OMALIZUMAB
     Route: 058
     Dates: start: 20180614
  29. XOLAIR [Suspect]
     Active Substance: OMALIZUMAB
     Route: 058
     Dates: start: 20190709
  30. PREDNISONE. [Suspect]
     Active Substance: PREDNISONE
     Indication: POLYMYALGIA RHEUMATICA
     Route: 048
     Dates: start: 20180111
  31. PREDNISONE. [Suspect]
     Active Substance: PREDNISONE
     Route: 048
     Dates: start: 20200316
  32. METFORMIN HYDROCHLORIDE. [Concomitant]
     Active Substance: METFORMIN HYDROCHLORIDE
  33. XOLAIR [Suspect]
     Active Substance: OMALIZUMAB
     Indication: ASTHMA
     Route: 058
     Dates: start: 20171130
  34. XOLAIR [Suspect]
     Active Substance: OMALIZUMAB
     Route: 058
     Dates: start: 20190723
  35. XOLAIR [Suspect]
     Active Substance: OMALIZUMAB
     Route: 058
     Dates: start: 2020
  36. XOLAIR [Suspect]
     Active Substance: OMALIZUMAB
     Route: 058
     Dates: start: 20200303
  37. XOLAIR [Suspect]
     Active Substance: OMALIZUMAB
     Route: 058
  38. XOLAIR [Suspect]
     Active Substance: OMALIZUMAB
     Route: 058
  39. XOLAIR [Suspect]
     Active Substance: OMALIZUMAB
     Route: 058
  40. XOLAIR [Suspect]
     Active Substance: OMALIZUMAB
     Route: 058
  41. ALENDRONATE [Concomitant]
     Active Substance: ALENDRONATE SODIUM
     Indication: PRODUCT USED FOR UNKNOWN INDICATION
     Route: 048
  42. XOLAIR [Suspect]
     Active Substance: OMALIZUMAB
     Route: 058
     Dates: start: 20171228
  43. XOLAIR [Suspect]
     Active Substance: OMALIZUMAB
     Route: 058
     Dates: start: 20171201
  44. ACETYLSALICYLIC ACID [Suspect]
     Active Substance: ASPIRIN
     Indication: PRODUCT USED FOR UNKNOWN INDICATION
     Route: 065
  45. CLONAZEPAM. [Concomitant]
     Active Substance: CLONAZEPAM
     Indication: PRODUCT USED FOR UNKNOWN INDICATION
     Dosage: 1 DF, TID
     Route: 065
  46. TUDORZA [Concomitant]
     Active Substance: ACLIDINIUM BROMIDE
     Indication: ASTHMA
     Dosage: 2 DF, BID?TUDORZA GENUAIR
     Route: 055
  47. ZENHALE [Concomitant]
     Active Substance: FORMOTEROL FUMARATE\MOMETASONE FUROATE
     Indication: ASTHMA
     Dosage: 2 DF, QID
     Route: 055
     Dates: start: 201703
  48. LASIX [Concomitant]
     Active Substance: FUROSEMIDE
     Indication: PRODUCT USED FOR UNKNOWN INDICATION
     Dosage: 1 DF, QD
     Route: 048
  49. KEFLEX [Concomitant]
     Active Substance: CEPHALEXIN
     Indication: PRODUCT USED FOR UNKNOWN INDICATION
  50. PIPERACILLIN AND TAZOBACTAM [Concomitant]
     Active Substance: PIPERACILLIN SODIUM\TAZOBACTAM SODIUM
     Indication: PRODUCT USED FOR UNKNOWN INDICATION
     Dosage: UNK
     Route: 065
     Dates: end: 20210215

REACTIONS (85)
  - Flank pain [Unknown]
  - Influenza like illness [Recovering/Resolving]
  - Incorrect dose administered [Unknown]
  - Back pain [Unknown]
  - Blood iron decreased [Unknown]
  - Myopathy [Unknown]
  - Hyperhidrosis [Not Recovered/Not Resolved]
  - Pseudomonas infection [Unknown]
  - Paraesthesia [Recovered/Resolved]
  - Product dose omission issue [Unknown]
  - Movement disorder [Unknown]
  - Blood pressure increased [Unknown]
  - Heart rate increased [Unknown]
  - Diarrhoea [Not Recovered/Not Resolved]
  - Influenza [Unknown]
  - Burning sensation [Unknown]
  - Nephrolithiasis [Unknown]
  - Bronchiectasis [Recovering/Resolving]
  - Blister [Unknown]
  - Hypoacusis [Recovered/Resolved]
  - Peripheral swelling [Recovered/Resolved]
  - Seizure [Unknown]
  - Dysarthria [Recovered/Resolved]
  - Oropharyngeal pain [Recovering/Resolving]
  - Syncope [Recovered/Resolved]
  - Urinary tract discomfort [Not Recovered/Not Resolved]
  - Obstructive airways disorder [Not Recovered/Not Resolved]
  - Limb injury [Recovering/Resolving]
  - Muscular weakness [Unknown]
  - Wound secretion [Unknown]
  - Chills [Not Recovered/Not Resolved]
  - Abdominal pain [Not Recovered/Not Resolved]
  - Ear congestion [Unknown]
  - Pyelonephritis [Unknown]
  - Drug hypersensitivity [Unknown]
  - Body temperature increased [Unknown]
  - Bronchitis [Unknown]
  - Muscle spasms [Unknown]
  - Feeling cold [Unknown]
  - Cardiac failure [Recovering/Resolving]
  - Haemoglobin decreased [Unknown]
  - Malaise [Unknown]
  - Myalgia [Unknown]
  - Drug dependence [Unknown]
  - Tunnel vision [Recovered/Resolved]
  - Illness [Unknown]
  - Pain in extremity [Unknown]
  - Pyrexia [Unknown]
  - Polymyalgia rheumatica [Not Recovered/Not Resolved]
  - Skin lesion [Unknown]
  - Pneumonia [Recovering/Resolving]
  - Bronchopulmonary aspergillosis allergic [Unknown]
  - Blood urine present [Unknown]
  - Cellulitis [Unknown]
  - Lower respiratory tract infection [Recovering/Resolving]
  - Sinus pain [Unknown]
  - Sinus disorder [Unknown]
  - Nasal polyps [Unknown]
  - Hypokinesia [Unknown]
  - Procedural pain [Recovering/Resolving]
  - Injection site pain [Recovered/Resolved]
  - Pain [Unknown]
  - Dyspnoea [Recovered/Resolved]
  - Herpes zoster [Unknown]
  - Urinary tract infection [Unknown]
  - Oedema [Recovered/Resolved]
  - Calculus urinary [Unknown]
  - Wound complication [Unknown]
  - Wrist fracture [Unknown]
  - Joint injury [Unknown]
  - Migraine [Unknown]
  - Sinusitis [Unknown]
  - Abdominal distension [Not Recovered/Not Resolved]
  - Bladder pain [Unknown]
  - Cough [Recovered/Resolved]
  - Arthralgia [Not Recovered/Not Resolved]
  - Panic attack [Unknown]
  - Skin laceration [Not Recovered/Not Resolved]
  - Haematuria [Unknown]
  - Ear pain [Recovering/Resolving]
  - Fall [Unknown]
  - Paranasal sinus discomfort [Unknown]
  - Depression [Unknown]
  - Decreased appetite [Not Recovered/Not Resolved]
  - Rales [Unknown]

NARRATIVE: CASE EVENT DATE: 20180105
